FAERS Safety Report 12342816 (Version 1)
Quarter: 2016Q2

REPORT INFORMATION
  Report Type: Other
  Country: IN (occurrence: IN)
  Receive Date: 20160506
  Receipt Date: 20160506
  Transmission Date: 20160815
  Serious: Yes (Death, Other)
  Sender: FDA-Public Use
  Company Number: IN-IGI LABORATORIES, INC.-1051591

PATIENT
  Age: 42 Year
  Sex: Male

DRUGS (1)
  1. FORTAZ [Suspect]
     Active Substance: CEFTAZIDIME SODIUM
     Indication: BURKHOLDERIA PSEUDOMALLEI INFECTION
     Route: 042

REACTIONS (3)
  - Cardiac arrest [Fatal]
  - Drug ineffective [Fatal]
  - Post procedural sepsis [Fatal]
